FAERS Safety Report 17168609 (Version 2)
Quarter: 2019Q4

REPORT INFORMATION
  Report Type: Report from Study
  Country: MX (occurrence: MX)
  Receive Date: 20191218
  Receipt Date: 20191224
  Transmission Date: 20200122
  Serious: Yes (Disabling)
  Sender: FDA-Public Use
  Company Number: MX-ROCHE-2493182

PATIENT
  Age: 78 Year
  Sex: Female
  Weight: 47.3 kg

DRUGS (10)
  1. PREDNISONE. [Concomitant]
     Active Substance: PREDNISONE
     Route: 065
     Dates: start: 20190716, end: 20191007
  2. COLECALCIFEROL [Concomitant]
     Active Substance: CHOLECALCIFEROL
     Dosage: SUSPECTED HYPOPHYSITIS
     Route: 048
     Dates: start: 20190716
  3. ONDANSETRON [Concomitant]
     Active Substance: ONDANSETRON
     Dosage: 8 MG EVERY 8 HOURS
     Route: 048
     Dates: start: 20190522, end: 20190814
  4. BIOMEGA [Concomitant]
     Active Substance: CAPSAICIN
     Dosage: SUSPECTED HYPOPHYSITIS
     Route: 048
     Dates: start: 20190716
  5. SENOSIDOS AB [Concomitant]
     Dosage: 1 TABLET EVERY 24 HOURS
     Route: 048
     Dates: start: 20190522, end: 20190814
  6. LEVOTHYROXINE SODIUM. [Concomitant]
     Active Substance: LEVOTHYROXINE SODIUM
     Dosage: SUSPECTED HYPOTHYROIDISM
     Route: 048
     Dates: start: 20190716, end: 20191007
  7. THIAMINE. [Concomitant]
     Active Substance: THIAMINE
     Dosage: SUSPECTED HYPOPHYSITIS
     Route: 030
     Dates: start: 20190716, end: 20190817
  8. PYRIDOXIN [Concomitant]
     Active Substance: PYRIDOXINE
     Dosage: SUSPECTED HYPOPHYSITIS
     Route: 030
     Dates: start: 20190716, end: 20190817
  9. HYDROXOCOBALAMIN [Concomitant]
     Active Substance: HYDROXOCOBALAMIN
     Dosage: SUSPECTED HYPOPHYSITIS
     Route: 030
     Dates: start: 20190716, end: 20190817
  10. ATEZOLIZUMAB. [Suspect]
     Active Substance: ATEZOLIZUMAB
     Indication: NON-SMALL CELL LUNG CANCER
     Dosage: ON 03/JUL/2019, MOST RECENT DOSE (1200 MG) OF ATEZOLIZUMAB WAS GIVEN.
     Route: 042
     Dates: start: 20190501

REACTIONS (5)
  - Hypothyroidism [Recovered/Resolved]
  - Neuropathy peripheral [Recovered/Resolved]
  - Acute motor axonal neuropathy [Recovered/Resolved]
  - Adrenal insufficiency [Recovered/Resolved]
  - Cerebral disorder [Recovered/Resolved]

NARRATIVE: CASE EVENT DATE: 20190724
